FAERS Safety Report 14378222 (Version 16)
Quarter: 2020Q2

REPORT INFORMATION
  Report Type: Spontaneous
  Country: US (occurrence: US)
  Receive Date: 20180111
  Receipt Date: 20200624
  Transmission Date: 20200713
  Serious: Yes (Death, Hospitalization)
  Sender: FDA-Public Use
  Company Number: US-ACTELION-A-NJ2018-165556

PATIENT
  Age: 76 Year
  Sex: Male
  Weight: 97.05 kg

DRUGS (6)
  1. UPTRAVI [Suspect]
     Active Substance: SELEXIPAG
     Dosage: 1600 MCG, BID
     Route: 048
  2. ADCIRCA [Concomitant]
     Active Substance: TADALAFIL
  3. OPSUMIT [Suspect]
     Active Substance: MACITENTAN
     Dosage: 10 MG, QD
     Route: 048
  4. OPSUMIT [Suspect]
     Active Substance: MACITENTAN
     Indication: PULMONARY ARTERIAL HYPERTENSION
     Dosage: 10 MG, QD
     Route: 048
  5. UPTRAVI [Suspect]
     Active Substance: SELEXIPAG
     Indication: PULMONARY ARTERIAL HYPERTENSION
     Dosage: 1600 MCG, BID
     Route: 048
  6. OXYGEN. [Concomitant]
     Active Substance: OXYGEN

REACTIONS (19)
  - Cardiac pacemaker insertion [Unknown]
  - Blood creatinine increased [Unknown]
  - Diarrhoea [Unknown]
  - Respiratory failure [Unknown]
  - Malaise [Unknown]
  - Death [Fatal]
  - Weight decreased [Unknown]
  - Lethargy [Unknown]
  - Blood potassium decreased [Unknown]
  - Oedema [Unknown]
  - Hip fracture [Unknown]
  - Mental status changes [Unknown]
  - Laboratory test abnormal [Unknown]
  - Full blood count decreased [Unknown]
  - Dyspnoea [Unknown]
  - Emergency care [Unknown]
  - Fatigue [Unknown]
  - Back pain [Unknown]
  - Fluid retention [Unknown]

NARRATIVE: CASE EVENT DATE: 20181015
